FAERS Safety Report 24370482 (Version 1)
Quarter: 2024Q3

REPORT INFORMATION
  Report Type: Spontaneous
  Country: US (occurrence: US)
  Receive Date: 20240927
  Receipt Date: 20240927
  Transmission Date: 20241017
  Serious: No
  Sender: ABBVIE
  Company Number: US-ABBVIE-5929926

PATIENT
  Age: 43 Year
  Sex: Female
  Weight: 64 kg

DRUGS (4)
  1. SYNTHROID [Suspect]
     Active Substance: LEVOTHYROXINE SODIUM
     Indication: Thyroid function test abnormal
     Route: 048
     Dates: start: 202212
  2. SYNTHROID [Suspect]
     Active Substance: LEVOTHYROXINE SODIUM
     Indication: Thyroid function test abnormal
     Route: 048
     Dates: start: 202301
  3. SYNTHROID [Suspect]
     Active Substance: LEVOTHYROXINE SODIUM
     Indication: Thyroid function test abnormal
     Dosage: FIRST ADMIN AND LAST ADMIN DATE: 2023
     Route: 048
  4. SYNTHROID [Suspect]
     Active Substance: LEVOTHYROXINE SODIUM
     Indication: Thyroid function test abnormal
     Route: 048
     Dates: start: 202312, end: 202402

REACTIONS (4)
  - Hallucination, auditory [Recovering/Resolving]
  - Headache [Recovering/Resolving]
  - Drug hypersensitivity [Not Recovered/Not Resolved]
  - Aggression [Unknown]

NARRATIVE: CASE EVENT DATE: 20221201
